FAERS Safety Report 15704173 (Version 1)
Quarter: 2018Q4

REPORT INFORMATION
  Report Type: Spontaneous
  Country: CA (occurrence: CA)
  Receive Date: 20181210
  Receipt Date: 20181210
  Transmission Date: 20190205
  Serious: Yes (Death)
  Sender: FDA-Public Use
  Company Number: CA-PFIZER INC-2018505071

PATIENT
  Age: 31 Year
  Sex: Female
  Weight: 97 kg

DRUGS (12)
  1. ELAVIL (ALLOPURINOL) [Suspect]
     Active Substance: ALLOPURINOL
     Dosage: 10 MG, 2X/DAY
  2. TEMAZEPAM. [Suspect]
     Active Substance: TEMAZEPAM
     Dosage: 30 MG, 1X/DAY
  3. ZOPICLONE [Suspect]
     Active Substance: ZOPICLONE
     Dosage: 7.5 MG, 1X/DAY
  4. ENALAPRIL [Suspect]
     Active Substance: ENALAPRIL
     Dosage: 5 MG, 1X/DAY
  5. GABAPENTIN. [Suspect]
     Active Substance: GABAPENTIN
     Dosage: 300 MG, 3X/DAY
  6. CODEINE PHOSPHATE [Suspect]
     Active Substance: CODEINE PHOSPHATE
     Dosage: 12 DF, AS NEEDED
  7. NAPROXEN. [Suspect]
     Active Substance: NAPROXEN
     Dosage: 375 MG, 2X/DAY
  8. RABEPRAZOLE [Suspect]
     Active Substance: RABEPRAZOLE
     Dosage: 20 MG, 2X/DAY
  9. CLONAZEPAM. [Suspect]
     Active Substance: CLONAZEPAM
     Dosage: 2 MG, 2X/DAY
  10. RANITIDINE. [Suspect]
     Active Substance: RANITIDINE
     Dosage: 150 MG, 2X/DAY
  11. FUROSEMIDE. [Suspect]
     Active Substance: FUROSEMIDE
     Dosage: 40 MG, UNK
  12. CITALOPRAM [Suspect]
     Active Substance: CITALOPRAM HYDROBROMIDE
     Dosage: 40 MG, 1X/DAY

REACTIONS (1)
  - Toxicity to various agents [Fatal]
